FAERS Safety Report 6303756-6 (Version None)
Quarter: 2009Q3

REPORT INFORMATION
  Report Type: 
  Country: None (occurrence: None)
  Receive Date: 20090810
  Receipt Date: 20090803
  Transmission Date: 20100115
  Serious: Yes (Hospitalization)
  Sender: FDA-Public Use
  Company Number: US-GILEAD-2009-0023458

PATIENT
  Sex: Male
  Weight: 82.628 kg

DRUGS (14)
  1. LETAIRIS [Suspect]
     Indication: PULMONARY ARTERIAL HYPERTENSION
     Route: 048
     Dates: end: 20090720
  2. DILTIAZEM HCL [Concomitant]
  3. IMDUR [Concomitant]
  4. COUMADIN [Concomitant]
  5. JANUVIA [Concomitant]
  6. SIMVASTATIN [Concomitant]
  7. NEXIUM [Concomitant]
  8. TESSALON [Concomitant]
  9. CELEXA [Concomitant]
  10. COMBIVENT [Concomitant]
  11. DOCUSATE [Concomitant]
  12. ASPIRIN [Concomitant]
  13. RENAGEL [Concomitant]
  14. RENA-VITE [Concomitant]

REACTIONS (1)
  - HYPOTENSION [None]
